FAERS Safety Report 15630280 (Version 1)
Quarter: 2018Q4

REPORT INFORMATION
  Report Type: Spontaneous
  Country: US (occurrence: US)
  Receive Date: 20181117
  Receipt Date: 20181117
  Transmission Date: 20190205
  Serious: Yes (Life-Threatening)
  Sender: FDA-Public Use
  Company Number: None

PATIENT
  Age: 48 Year
  Sex: Female
  Weight: 67.5 kg

DRUGS (2)
  1. FENTANYL PF (INDICATED ON MY MEDICAL RECORDS) [Suspect]
     Active Substance: FENTANYL
     Indication: URETERIC OBSTRUCTION
     Route: 042
  2. FENTANYL PF (INDICATED ON MY MEDICAL RECORDS) [Suspect]
     Active Substance: FENTANYL
     Indication: RENAL COLIC
     Route: 042

REACTIONS (4)
  - Product label issue [None]
  - Loss of consciousness [None]
  - Unresponsive to stimuli [None]
  - Drug ineffective [None]

NARRATIVE: CASE EVENT DATE: 20180924
